FAERS Safety Report 9977385 (Version 2)
Quarter: 2014Q1

REPORT INFORMATION
  Report Type: Report from Study
  Country: US (occurrence: US)
  Receive Date: 20140306
  Receipt Date: 20140306
  Transmission Date: 20141002
  Serious: Yes (Hospitalization)
  Sender: FDA-Public Use
  Company Number: US-ABBVIE-13P-163-1123487-00

PATIENT
  Age: 73 Year
  Sex: Female
  Weight: 84.9 kg

DRUGS (2)
  1. HUMIRA [Suspect]
     Indication: RHEUMATOID ARTHRITIS
     Route: 058
     Dates: start: 20130121
  2. HUMIRA [Suspect]
     Route: 058
     Dates: start: 20130618

REACTIONS (3)
  - Hip surgery [Unknown]
  - Arthralgia [Unknown]
  - Limb asymmetry [Unknown]
